FAERS Safety Report 12888245 (Version 5)
Quarter: 2017Q2

REPORT INFORMATION
  Report Type: Spontaneous
  Country: US (occurrence: US)
  Receive Date: 20161027
  Receipt Date: 20170403
  Transmission Date: 20170830
  Serious: Yes (Other)
  Sender: FDA-Public Use
  Company Number: PHEH2016US027886

PATIENT
  Sex: Female
  Weight: 88.44 kg

DRUGS (2)
  1. ZOFRAN [Suspect]
     Active Substance: ONDANSETRON HYDROCHLORIDE
     Indication: PRODUCT USED FOR UNKNOWN INDICATION
     Route: 065
  2. ONDANSETRON [Suspect]
     Active Substance: ONDANSETRON
     Indication: VOMITING IN PREGNANCY
     Route: 065
     Dates: start: 200604, end: 200612

REACTIONS (7)
  - Ovarian disorder [Unknown]
  - Product use in unapproved indication [Unknown]
  - Normal newborn [Unknown]
  - Premature delivery [Unknown]
  - Injury [Unknown]
  - Pelvic pain [Unknown]
  - Maternal exposure during pregnancy [Unknown]
